FAERS Safety Report 5270611-2 (Version None)
Quarter: 2007Q1

REPORT INFORMATION
  Report Type: 
  Country: None (occurrence: None)
  Receive Date: 20070315
  Receipt Date: 20070308
  Transmission Date: 20070707
  Serious: Yes (Death, Life-Threatening)
  Sender: FDA-Public Use
  Company Number: 163-21880-06080707

PATIENT
  Age: 43 Year
  Sex: Male

DRUGS (17)
  1. REVLIMID [Suspect]
     Indication: MYELODYSPLASTIC SYNDROME
     Dosage: 10 MG, 1 IN 1 D, ORAL
     Route: 048
     Dates: start: 20060725, end: 20060727
  2. FOSAMAX [Concomitant]
  3. CALCIUM (CALCIUM) [Concomitant]
  4. AUGMENTIN '125' [Concomitant]
  5. PREDNISONE TAB [Concomitant]
  6. FOLIC ACID [Concomitant]
  7. PENTAMIDINE (PENTAMIDINE) [Concomitant]
  8. ACYCLOVIR [Concomitant]
  9. ZITHROMAX [Concomitant]
  10. VORICONAZOLE (VORICONAZOLE) [Concomitant]
  11. SLIDING SCALE INSULIN (INSULIN) [Concomitant]
  12. AMBIEN [Concomitant]
  13. GLYBURIDE [Concomitant]
  14. SLOW-MAG (MAGNESIUM CHLORIDE ANHYDROUS) [Concomitant]
  15. SUDAFED 12 HOUR [Concomitant]
  16. MULTIVITAMIN [Concomitant]
  17. PROTONIX [Concomitant]

REACTIONS (3)
  - BLAST CELL COUNT INCREASED [None]
  - ORGAN FAILURE [None]
  - SEPSIS [None]
